FAERS Safety Report 8445395-7 (Version None)
Quarter: 2012Q2

REPORT INFORMATION
  Report Type: 
  Country: None (occurrence: None)
  Receive Date: 20120618
  Receipt Date: 20120409
  Transmission Date: 20120825
  Serious: No
  Sender: FDA-Public Use
  Company Number: US-TEVA-2011005910

PATIENT
  Sex: Female

DRUGS (4)
  1. LYRICA [Concomitant]
  2. DILAUDID [Concomitant]
     Dosage: 1-2 2 2 HRS AS NEEDED
     Route: 048
  3. FENTORA [Suspect]
     Indication: RECTAL CANCER
     Dosage: 7200 MICROGRAM;
     Route: 002
  4. FENTANYL-100 [Concomitant]
     Route: 062

REACTIONS (3)
  - INTENTIONAL DRUG MISUSE [None]
  - DRUG INEFFECTIVE [None]
  - PAIN [None]
